FAERS Safety Report 5065333-7 (Version None)
Quarter: 2006Q3

REPORT INFORMATION
  Report Type: 
  Country: None (occurrence: None)
  Receive Date: 20060731
  Receipt Date: 20060720
  Transmission Date: 20061208
  Serious: Yes (Hospitalization)
  Sender: FDA-Public Use
  Company Number: US-JNJFOC-20060704301

PATIENT
  Sex: Female

DRUGS (17)
  1. REMICADE [Suspect]
     Indication: RHEUMATOID ARTHRITIS
     Route: 042
  2. METHOTREXATE [Concomitant]
  3. ASPIRIN [Concomitant]
  4. PREDNISONE [Concomitant]
  5. ELAVIL [Concomitant]
  6. PERCOCET [Concomitant]
  7. VOLTAREN [Concomitant]
  8. DURAGESIC-100 [Concomitant]
  9. MEVACOR [Concomitant]
  10. ARAVA [Concomitant]
  11. COREG [Concomitant]
  12. LISINOPRIL [Concomitant]
  13. FOLIC ACID [Concomitant]
  14. ACETAMINOPHEN [Concomitant]
  15. METFORMIN [Concomitant]
  16. BENADRYL [Concomitant]
  17. MEDROL [Concomitant]

REACTIONS (1)
  - CORONARY ARTERY DISEASE [None]
